FAERS Safety Report 9378547 (Version 3)
Quarter: 2014Q3

REPORT INFORMATION
  Report Type: Spontaneous
  Country: US (occurrence: US)
  Receive Date: 20130702
  Receipt Date: 20140826
  Transmission Date: 20150326
  Serious: No
  Sender: FDA-Public Use
  Company Number: US-ASTRAZENECA-2013SE48017

PATIENT
  Sex: Female

DRUGS (2)
  1. SYMBICORT [Suspect]
     Active Substance: BUDESONIDE\FORMOTEROL FUMARATE DIHYDRATE
     Dosage: 160/4.5, 2 PUFFS TWICE A DAY
     Route: 055
  2. PREDNISONE. [Concomitant]
     Active Substance: PREDNISONE

REACTIONS (10)
  - Circumstance or information capable of leading to medication error [Unknown]
  - Drug dose omission [Unknown]
  - Sleep disorder due to a general medical condition [Unknown]
  - Intentional product misuse [Unknown]
  - Dyspnoea [Unknown]
  - Nasopharyngitis [Unknown]
  - Wheezing [Unknown]
  - Adverse event [Unknown]
  - Off label use [Unknown]
  - Nasal congestion [Unknown]
